FAERS Safety Report 11227428 (Version 2)
Quarter: 2015Q4

REPORT INFORMATION
  Report Type: Spontaneous
  Country: CH (occurrence: CH)
  Receive Date: 20150630
  Receipt Date: 20151116
  Transmission Date: 20160304
  Serious: Yes (Other)
  Sender: FDA-Public Use
  Company Number: CH-TEVA-574019ISR

PATIENT
  Age: 41 Year
  Sex: Male

DRUGS (3)
  1. CIPROFLOXACIN. [Suspect]
     Active Substance: CIPROFLOXACIN
     Indication: CROHN^S DISEASE
     Dosage: ADMINISTERED TEMPORARILY
     Route: 065
  2. AMOXICILLIN/CLAVULANIC ACID [Suspect]
     Active Substance: AMOXICILLIN\CLAVULANIC ACID
     Indication: ERYSIPELAS
     Route: 065
     Dates: start: 2014
  3. AZITHROMYCIN [Suspect]
     Active Substance: AZITHROMYCIN ANHYDROUS
     Indication: RESPIRATORY TRACT INFECTION
     Route: 065
     Dates: start: 2014

REACTIONS (7)
  - Transaminases increased [Unknown]
  - Erysipelas [Unknown]
  - Hyperhidrosis [Unknown]
  - Hepatosplenic T-cell lymphoma [Unknown]
  - Hepatitis [Unknown]
  - Decreased appetite [Unknown]
  - Weight decreased [Unknown]

NARRATIVE: CASE EVENT DATE: 2014
